FAERS Safety Report 7590604-X (Version None)
Quarter: 2011Q3

REPORT INFORMATION
  Report Type: 
  Country: None (occurrence: None)
  Receive Date: 20110705
  Receipt Date: 20110629
  Transmission Date: 20111222
  Serious: Yes (Death)
  Sender: FDA-Public Use
  Company Number: VE-PFIZER INC-2011138647

PATIENT
  Age: 87 Year
  Sex: Female

DRUGS (3)
  1. BENICAR [Concomitant]
     Indication: HYPERTENSION
  2. LIPITOR [Suspect]
     Indication: HYPERCHOLESTEROLAEMIA
     Dosage: 40 MG, 1X/DAY
     Route: 048
  3. LANTUS [Concomitant]
     Indication: DIABETES MELLITUS

REACTIONS (1)
  - CEREBRAL HAEMORRHAGE [None]
